FAERS Safety Report 7728407-5 (Version None)
Quarter: 2011Q3

REPORT INFORMATION
  Report Type: 
  Country: None (occurrence: None)
  Receive Date: 20110905
  Receipt Date: 20110830
  Transmission Date: 20111222
  Serious: Yes (Death, Other)
  Sender: FDA-Public Use
  Company Number: PHFR2011GB01190

PATIENT
  Sex: Male

DRUGS (3)
  1. CLOZAPINE [Suspect]
     Dosage: 400 MG, QD
     Route: 048
  2. CLOZAPINE [Suspect]
     Indication: SCHIZOPHRENIA
     Route: 048
     Dates: start: 20040601
  3. ATORVASTATIN [Concomitant]
     Indication: HYPERCHOLESTEROLAEMIA
     Dosage: 20 MG/DAY
     Route: 048

REACTIONS (6)
  - LEFT VENTRICULAR HYPERTROPHY [None]
  - OBESITY [None]
  - VENTRICULAR TACHYCARDIA [None]
  - LEFT VENTRICULAR FAILURE [None]
  - ARRHYTHMIA [None]
  - VENTRICULAR EXTRASYSTOLES [None]
